FAERS Safety Report 13835064 (Version 2)
Quarter: 2017Q3

REPORT INFORMATION
  Report Type: Spontaneous
  Country: US (occurrence: US)
  Receive Date: 20170804
  Receipt Date: 20170913
  Transmission Date: 20171127
  Serious: No
  Sender: FDA-Public Use
  Company Number: PHEH2017US023863

PATIENT
  Sex: Male

DRUGS (1)
  1. COSENTYX [Suspect]
     Active Substance: SECUKINUMAB
     Indication: PRODUCT USED FOR UNKNOWN INDICATION
     Dosage: 150 MG, UNK (150 MG/ML TWO PENS)
     Route: 065

REACTIONS (4)
  - Injection site erythema [Unknown]
  - Ear infection [Unknown]
  - Needle issue [Unknown]
  - Hypoacusis [Unknown]
